FAERS Safety Report 12940234 (Version 2)
Quarter: 2017Q2

REPORT INFORMATION
  Report Type: Other
  Country: US (occurrence: US)
  Receive Date: 20161114
  Receipt Date: 20170407
  Transmission Date: 20170830
  Serious: No
  Sender: FDA-Public Use
  Company Number: US-SHIRE-US201617034

PATIENT
  Age: 23 Year
  Sex: Female

DRUGS (1)
  1. XIIDRA [Suspect]
     Active Substance: LIFITEGRAST
     Indication: DRY EYE
     Dosage: 2 GTT (PER EYE), OTHER (EVERY 8-10 HOURS)
     Route: 047
     Dates: start: 201610

REACTIONS (4)
  - Prescribed overdose [Not Recovered/Not Resolved]
  - Inappropriate schedule of drug administration [Not Recovered/Not Resolved]
  - Eye irritation [Unknown]
  - Lacrimation decreased [Unknown]

NARRATIVE: CASE EVENT DATE: 201610
